FAERS Safety Report 6446324-8 (Version None)
Quarter: 2009Q4

REPORT INFORMATION
  Report Type: 
  Country: None (occurrence: None)
  Receive Date: 20091116
  Receipt Date: 20091102
  Transmission Date: 20100525
  Serious: Yes (Hospitalization, Other)
  Sender: FDA-Public Use
  Company Number: 2009SP035418

PATIENT
  Sex: Male
  Weight: 3.7422 kg

DRUGS (2)
  1. NUVARING [Suspect]
     Indication: PREGNANCY
     Dosage: TRPL
     Route: 064
  2. BETASERON [Suspect]
     Indication: PREGNANCY
     Dosage: TRPL
     Route: 064

REACTIONS (6)
  - CONGENITAL MUSCULOSKELETAL ANOMALY [None]
  - DRUG EXPOSURE DURING PREGNANCY [None]
  - IMMATURE RESPIRATORY SYSTEM [None]
  - MEDICATION ERROR [None]
  - PULMONARY DYSMATURITY SYNDROME [None]
  - UNINTENDED PREGNANCY [None]
